FAERS Safety Report 24003768 (Version 4)
Quarter: 2024Q3

REPORT INFORMATION
  Report Type: Spontaneous
  Country: US (occurrence: US)
  Receive Date: 20240624
  Receipt Date: 20240704
  Transmission Date: 20241017
  Serious: Yes (Hospitalization)
  Sender: ROCHE
  Company Number: US-ROCHE-3561732

PATIENT
  Sex: Male
  Weight: 72.57 kg

DRUGS (9)
  1. ESBRIET [Suspect]
     Active Substance: PIRFENIDONE
     Indication: Pulmonary fibrosis
     Dosage: FIRST WEEK ONE PILL THREE TIMES PER DAY, THE NEXT WEEK HE TOOK 2 PILLS THREE TIMES PER DAY, AND THE
     Route: 048
     Dates: start: 20240422
  2. ZOFRAN [Suspect]
     Active Substance: ONDANSETRON HYDROCHLORIDE
     Indication: Product used for unknown indication
     Route: 065
  3. AMLODIPINE BESYLATE [Concomitant]
     Active Substance: AMLODIPINE BESYLATE
     Indication: Hypertension
  4. ATENOLOL [Concomitant]
     Active Substance: ATENOLOL
     Indication: Hypertension
  5. OMEPRAZOLE [Concomitant]
     Active Substance: OMEPRAZOLE
     Indication: Gastrooesophageal reflux disease
  6. HYDROCODONE [Concomitant]
     Active Substance: HYDROCODONE
     Indication: Back pain
  7. LOSARTAN POTASSIUM [Concomitant]
     Active Substance: LOSARTAN POTASSIUM
  8. AMLODIPINE BESYLATE [Concomitant]
     Active Substance: AMLODIPINE BESYLATE
  9. ROSUVASTATIN [Concomitant]
     Active Substance: ROSUVASTATIN

REACTIONS (11)
  - Abdominal discomfort [Recovered/Resolved]
  - Dizziness [Unknown]
  - Head discomfort [Unknown]
  - Vomiting [Unknown]
  - Malaise [Unknown]
  - Weight decreased [Unknown]
  - Asthenia [Unknown]
  - Discomfort [Recovered/Resolved]
  - Abdominal pain [Unknown]
  - Gastrointestinal disorder [Unknown]
  - Decreased appetite [Unknown]
